FAERS Safety Report 7402077-8 (Version None)
Quarter: 2011Q2

REPORT INFORMATION
  Report Type: 
  Country: None (occurrence: None)
  Receive Date: 20110408
  Receipt Date: 20110406
  Transmission Date: 20111010
  Serious: Yes (Other)
  Sender: FDA-Public Use
  Company Number: US-BAYER-2011-030142

PATIENT
  Sex: Female

DRUGS (2)
  1. YASMIN [Suspect]
     Dosage: UNK
     Dates: start: 20010101
  2. YAZ [Suspect]
     Dosage: UNK
     Dates: start: 20060101, end: 20080101

REACTIONS (8)
  - ABDOMINAL PAIN UPPER [None]
  - INJURY [None]
  - GALLBLADDER DISORDER [None]
  - ANXIETY [None]
  - GASTROINTESTINAL DISORDER [None]
  - PAIN [None]
  - MENTAL DISORDER [None]
  - ANHEDONIA [None]
